FAERS Safety Report 22265578 (Version 1)
Quarter: 2023Q2

REPORT INFORMATION
  Report Type: Spontaneous
  Country: US (occurrence: None)
  Receive Date: 20230426
  Receipt Date: 20230426
  Transmission Date: 20230722
  Serious: No
  Sender: FDA-Public Use
  Company Number: None

PATIENT
  Age: 78 Year
  Sex: Female
  Weight: 54.43 kg

DRUGS (10)
  1. LENALIDOMIDE [Suspect]
     Active Substance: LENALIDOMIDE
     Indication: Plasma cell myeloma
     Dosage: OTHER FREQUENCY : 2W,1W OFF;?
     Route: 048
     Dates: start: 20220928
  2. AMLODIPINE BESYLATE\VALSARTAN [Concomitant]
     Active Substance: AMLODIPINE BESYLATE\VALSARTAN
  3. AMOXICILLIN [Concomitant]
     Active Substance: AMOXICILLIN
  4. COD LIVER OIL [Concomitant]
     Active Substance: COD LIVER OIL
  5. MAGNESIUM [Concomitant]
     Active Substance: MAGNESIUM
  6. OMEGA-3 ACIDS [Concomitant]
     Active Substance: OMEGA-3 FATTY ACIDS
  7. TRAMADOL [Concomitant]
     Active Substance: TRAMADOL
  8. MENAQUINONE 6 [Concomitant]
     Active Substance: MENAQUINONE 6
  9. VITAMIN D3 [Concomitant]
     Active Substance: CHOLECALCIFEROL
  10. ZINC [Concomitant]
     Active Substance: ZINC

REACTIONS (1)
  - Blood pressure increased [None]
